FAERS Safety Report 7291114-X (Version None)
Quarter: 2011Q1

REPORT INFORMATION
  Report Type: 
  Country: None (occurrence: None)
  Receive Date: 20110214
  Receipt Date: 20110208
  Transmission Date: 20110831
  Serious: Yes (Other)
  Sender: FDA-Public Use
  Company Number: US-JNJFOC-20110203063

PATIENT
  Sex: Male

DRUGS (2)
  1. RISPERDAL [Suspect]
     Indication: BIPOLAR DISORDER
     Dosage: HALF TABLET OF 4MG
     Route: 048
  2. RISPERDAL [Suspect]
     Route: 048

REACTIONS (6)
  - GYNAECOMASTIA [None]
  - BONE CYST [None]
  - BREAST CYST [None]
  - CYST [None]
  - DIABETES MELLITUS [None]
  - CEREBRAL CYST [None]
